FAERS Safety Report 14344530 (Version 16)
Quarter: 2023Q2

REPORT INFORMATION
  Report Type: Spontaneous
  Country: PL (occurrence: PL)
  Receive Date: 20180102
  Receipt Date: 20230608
  Transmission Date: 20230722
  Serious: Yes (Life-Threatening, Hospitalization, Disabling, Other)
  Sender: FDA-Public Use
  Company Number: PL-EMA-DD-20171215-NSINGHEVHP-153946

PATIENT
  Age: 50 Year
  Sex: Female

DRUGS (31)
  1. ZOLPIDEM [Suspect]
     Active Substance: ZOLPIDEM TARTRATE
     Indication: Depressed mood
     Dosage: 10 MG, QD BEFORE BED TIME, DRUG NO LONG,
     Route: 048
  2. ZOLPIDEM [Suspect]
     Active Substance: ZOLPIDEM TARTRATE
     Indication: Sleep disorder
  3. CLARITHROMYCIN [Suspect]
     Active Substance: CLARITHROMYCIN
     Indication: Tinnitus
     Dosage: (BEDTIME),  2 X 10 DAYS,
     Route: 048
  4. CLARITHROMYCIN [Suspect]
     Active Substance: CLARITHROMYCIN
     Dosage: 250 MILLIGRAM QD (BEDTIME)
     Route: 048
  5. ATORVASTATIN [Suspect]
     Active Substance: ATORVASTATIN
     Indication: Hypercholesterolaemia
     Dosage: 10 MILLIGRAM, QD (QD (BEDTIME), DAILY)
     Route: 048
  6. TRAMADOL [Suspect]
     Active Substance: TRAMADOL
     Indication: Osteoarthritis
     Dosage: TRAMADOL IN COMBINATION WITH MELOXICAM FOR ABOUT
     Route: 048
  7. TRAMADOL [Suspect]
     Active Substance: TRAMADOL
     Indication: Analgesic therapy
  8. TRAMADOL [Suspect]
     Active Substance: TRAMADOL
     Indication: Arthralgia
  9. ESCITALOPRAM [Suspect]
     Active Substance: ESCITALOPRAM OXALATE
     Indication: Depression
     Dosage: 10 MG, QD (BEFORE SLEEPING, AT BEDTIME)
     Route: 048
  10. ESCITALOPRAM [Suspect]
     Active Substance: ESCITALOPRAM OXALATE
     Indication: Insomnia
     Dosage: 10 MG, DOCTOR SWITCHED THE PATIENT FROM SERTRALIN
     Route: 048
  11. ESCITALOPRAM [Suspect]
     Active Substance: ESCITALOPRAM OXALATE
     Indication: Affective disorder
  12. SERTRALINE [Suspect]
     Active Substance: SERTRALINE HYDROCHLORIDE
     Indication: Depression
     Dosage: 50 MILLIGRAM, QD
     Route: 048
  13. SERTRALINE [Suspect]
     Active Substance: SERTRALINE HYDROCHLORIDE
     Indication: Depressed mood
     Dosage: 50 MILLIGRAM, QD IN THE MORNING
     Route: 048
  14. BISOPROLOL [Suspect]
     Active Substance: BISOPROLOL
     Indication: Product used for unknown indication
     Dosage: 2.5 MILLIGRAM
     Route: 048
  15. DOXEPIN [Suspect]
     Active Substance: DOXEPIN
     Indication: Depressed mood
     Dosage: 25 MG, QD QHS, AT BEDTIME
     Route: 048
  16. DOXEPIN [Suspect]
     Active Substance: DOXEPIN
     Indication: Affective disorder
     Dosage: UNK, QD DAILY, IN THE EVENING
     Route: 048
  17. DOXEPIN [Suspect]
     Active Substance: DOXEPIN
     Indication: Depression
     Dosage: 2.5 MILLIGRAM
     Route: 048
  18. ATORVASTATIN [Suspect]
     Active Substance: ATORVASTATIN
     Indication: Hypercholesterolaemia
     Dosage: UNK
     Route: 065
  19. MELOXICAM [Suspect]
     Active Substance: MELOXICAM
     Indication: Osteoarthritis
     Dosage: DAILY, TRAMADOL IN COMBINATION WITH MELOXICAM
     Route: 065
  20. MELOXICAM [Suspect]
     Active Substance: MELOXICAM
     Indication: Arthralgia
  21. PERINDOPRIL [Suspect]
     Active Substance: PERINDOPRIL
     Indication: Hypertension
     Dosage: UNK
     Route: 048
  22. PERINDOPRIL [Suspect]
     Active Substance: PERINDOPRIL
     Dosage: UNK
     Route: 065
  23. ATORVASTATIN [Suspect]
     Active Substance: ATORVASTATIN
     Indication: Product used for unknown indication
     Dosage: UNK
     Route: 065
  24. BISOPROLOL FUMARATE [Suspect]
     Active Substance: BISOPROLOL FUMARATE
     Indication: Product used for unknown indication
     Dosage: UNK
     Route: 065
  25. MELOXICAM [Suspect]
     Active Substance: MELOXICAM
     Indication: Osteoarthritis
     Dosage: TRAMADOL IN COMBINATION WITH MELOXICAM, FOR ABOUT
     Route: 048
  26. MELOXICAM [Suspect]
     Active Substance: MELOXICAM
     Indication: Arthralgia
  27. MELOXICAM [Suspect]
     Active Substance: MELOXICAM
     Indication: Osteoarthritis
     Dosage: (BEDTIME), TRAMADOL IN COMBINATION WITH MELOXICAM
     Route: 048
  28. MELOXICAM [Suspect]
     Active Substance: MELOXICAM
     Indication: Arthralgia
     Dosage: (BEDTIME), TRAMADOL IN COMBINATION WITH MELOXICAM
     Route: 065
  29. ZOLPIDEM TARTRATE [Suspect]
     Active Substance: ZOLPIDEM TARTRATE
     Indication: Sleep disorder
     Dosage: 10 MG QD HS AT BEDTIME
     Route: 048
  30. ATORVASTATIN [Concomitant]
     Active Substance: ATORVASTATIN
     Indication: Hypercholesterolaemia
     Dosage: UNK
     Route: 065
  31. PERINDOPRIL [Concomitant]
     Active Substance: PERINDOPRIL
     Indication: Hypertension
     Dosage: UNK
     Route: 065

REACTIONS (15)
  - Tinnitus [Recovering/Resolving]
  - Suicide attempt [Recovered/Resolved]
  - Loss of consciousness [Recovered/Resolved]
  - Intentional product misuse [Recovering/Resolving]
  - Insomnia [Recovering/Resolving]
  - Affective disorder [Recovering/Resolving]
  - Loss of personal independence in daily activities [Recovered/Resolved]
  - Impaired work ability [Recovered/Resolved]
  - Depression [Recovering/Resolving]
  - Intentional overdose [Unknown]
  - Overdose [Recovered/Resolved]
  - Product use in unapproved indication [Recovered/Resolved]
  - Drug ineffective [Unknown]
  - Drug abuse [Unknown]
  - Condition aggravated [Recovering/Resolving]
